FAERS Safety Report 7108297-4 (Version None)
Quarter: 2010Q4

REPORT INFORMATION
  Report Type: 
  Country: None (occurrence: None)
  Receive Date: 20101115
  Receipt Date: 20101115
  Transmission Date: 20110411
  Serious: Yes (Life-Threatening, Disabling)
  Sender: FDA-Public Use
  Company Number: None

PATIENT
  Sex: Female

DRUGS (1)
  1. GLUCOPHAGE [Suspect]
     Indication: TYPE 2 DIABETES MELLITUS
     Dosage: 500 MG. 2X DAY

REACTIONS (6)
  - DIALYSIS [None]
  - DIARRHOEA [None]
  - MALAISE [None]
  - NAUSEA [None]
  - RENAL FAILURE [None]
  - VOMITING [None]
